FAERS Safety Report 23507804 (Version 2)
Quarter: 2024Q2

REPORT INFORMATION
  Report Type: Spontaneous
  Country: US (occurrence: US)
  Receive Date: 20240209
  Receipt Date: 20240520
  Transmission Date: 20240716
  Serious: Yes (Hospitalization, Other)
  Sender: FDA-Public Use
  Company Number: US-UCBSA-2024005510

PATIENT
  Sex: Female

DRUGS (1)
  1. CIMZIA [Suspect]
     Active Substance: CERTOLIZUMAB PEGOL
     Indication: Rheumatoid arthritis
     Dosage: 200 MILLIGRAM, EV 2 WEEKS(QOW)
     Route: 058
     Dates: end: 20231207

REACTIONS (14)
  - Arthralgia [Unknown]
  - Neck pain [Unknown]
  - Pain in jaw [Unknown]
  - Burning sensation [Unknown]
  - Paraesthesia [Not Recovered/Not Resolved]
  - Hypoaesthesia [Unknown]
  - Pain [Unknown]
  - Gait inability [Unknown]
  - Swelling [Unknown]
  - Rash [Unknown]
  - Loss of personal independence in daily activities [Unknown]
  - Joint swelling [Unknown]
  - Joint lock [Unknown]
  - Peripheral swelling [Unknown]

NARRATIVE: CASE EVENT DATE: 20230101
